FAERS Safety Report 10215460 (Version 2)
Quarter: 2014Q2

REPORT INFORMATION
  Report Type: Spontaneous
  Country: AR (occurrence: AR)
  Receive Date: 20140604
  Receipt Date: 20140604
  Transmission Date: 20141212
  Serious: Yes (Hospitalization, Other)
  Sender: FDA-Public Use
  Company Number: AR-AMGEN INC.-ARGSP2014033710

PATIENT
  Age: 56 Year
  Sex: Female

DRUGS (4)
  1. ENBREL [Suspect]
     Indication: RHEUMATOID ARTHRITIS
     Dosage: 50 MG, WEEKLY
     Route: 058
     Dates: start: 20090916, end: 201202
  2. LOTRIAL                            /00574902/ [Concomitant]
     Dosage: UNK
  3. DIGOXINA [Concomitant]
     Dosage: UNK
  4. LASIX                              /00032601/ [Concomitant]
     Dosage: UNK

REACTIONS (2)
  - Arthropathy [Recovered/Resolved]
  - Cardiac failure [Not Recovered/Not Resolved]
